FAERS Safety Report 19514389 (Version 11)
Quarter: 2022Q1

REPORT INFORMATION
  Report Type: Report from Study
  Country: NL (occurrence: NL)
  Receive Date: 20210709
  Receipt Date: 20220111
  Transmission Date: 20220423
  Serious: Yes (Hospitalization)
  Sender: FDA-Public Use
  Company Number: NL-SA-2017SA225155

PATIENT
  Age: 40 Year
  Sex: Male
  Weight: 93.1 kg

DRUGS (35)
  1. ALEMTUZUMAB [Suspect]
     Active Substance: ALEMTUZUMAB
     Indication: Relapsing multiple sclerosis
     Dosage: 12 MG,QD
     Route: 041
     Dates: start: 20160613, end: 20160617
  2. ALEMTUZUMAB [Suspect]
     Active Substance: ALEMTUZUMAB
     Dosage: 12 MG,QD
     Route: 041
     Dates: start: 20170626, end: 20170628
  3. ACETAMINOPHEN [Concomitant]
     Active Substance: ACETAMINOPHEN
     Indication: Prophylaxis
     Dosage: 4000 MG, PRN
     Route: 048
     Dates: start: 2016
  4. MIRABEGRON [Concomitant]
     Active Substance: MIRABEGRON
     Indication: Multiple sclerosis
     Dosage: 50 MG, QD
     Route: 048
     Dates: start: 2016
  5. ROPINIROLE [Concomitant]
     Active Substance: ROPINIROLE
     Indication: Multiple sclerosis
     Dosage: UNK
     Route: 048
     Dates: start: 20201216, end: 20210708
  6. VENTOLIN [Concomitant]
     Active Substance: ALBUTEROL SULFATE
     Dosage: 600 UG, QD
     Route: 055
     Dates: start: 2016
  7. CANNABIDIOL [Concomitant]
     Active Substance: CANNABIDIOL
     Indication: Multiple sclerosis
     Dosage: 1 DROP, QD
     Route: 048
     Dates: start: 2016
  8. BACLOFEN [Concomitant]
     Active Substance: BACLOFEN
     Indication: Multiple sclerosis
     Dosage: 5 MG, QD
     Route: 048
     Dates: start: 2016, end: 2019
  9. SILDENAFIL [Concomitant]
     Active Substance: SILDENAFIL
     Indication: Multiple sclerosis
     Dosage: 100 MG, QD
     Route: 048
     Dates: start: 2016, end: 20201216
  10. SILDENAFIL [Concomitant]
     Active Substance: SILDENAFIL
     Indication: Prophylaxis
     Dosage: UNK
     Route: 048
     Dates: start: 20201216
  11. CHOLECALCIFEROL [Concomitant]
     Active Substance: CHOLECALCIFEROL
     Indication: Multiple sclerosis
     Dosage: 800 MG, QD
     Route: 048
     Dates: start: 2016, end: 2019
  12. DESMOPRESSINE A [Concomitant]
     Indication: Multiple sclerosis
     Dosage: 20 UG, QD
     Route: 055
     Dates: start: 2016
  13. DESMOPRESSINE A [Concomitant]
     Indication: Prophylaxis
  14. ACTONEL [Concomitant]
     Active Substance: RISEDRONATE SODIUM
     Indication: Prophylaxis
     Dosage: 35 MG, QW
     Route: 048
     Dates: start: 20190507
  15. ROPINIROL [ROPINIROLE] [Concomitant]
     Indication: Multiple sclerosis
     Dosage: 10 MG, QD
     Route: 048
     Dates: start: 2016, end: 20210708
  16. ROPINIROL [ROPINIROLE] [Concomitant]
     Dosage: UNK
     Route: 048
     Dates: start: 20210708
  17. GABAPENTIN [Concomitant]
     Active Substance: GABAPENTIN
     Indication: Multiple sclerosis
     Dosage: 300 MG, QD
     Route: 048
     Dates: start: 2016, end: 20210708
  18. GABAPENTIN [Concomitant]
     Active Substance: GABAPENTIN
     Dosage: UNK
     Route: 048
     Dates: start: 20210708
  19. DALFAMPRIDINE [Concomitant]
     Active Substance: DALFAMPRIDINE
     Indication: Multiple sclerosis
     Dosage: 20 MG, QD
     Route: 048
     Dates: start: 2014
  20. NITRAZEPAM [Concomitant]
     Active Substance: NITRAZEPAM
     Indication: Multiple sclerosis
     Dosage: 5 MG, QD
     Route: 048
     Dates: start: 2016
  21. METHYLPREDNISOLONE [Concomitant]
     Active Substance: METHYLPREDNISOLONE
     Indication: Prophylaxis
     Dosage: 1000 MG, QD
     Route: 042
     Dates: start: 20170626, end: 20170628
  22. METHYLPREDNISOLONE [Concomitant]
     Active Substance: METHYLPREDNISOLONE
     Indication: Multiple sclerosis
     Dosage: 1000 MG, QM
     Route: 042
     Dates: start: 20181119
  23. ACYCLOVIR [Concomitant]
     Active Substance: ACYCLOVIR
     Indication: Prophylaxis
     Dosage: 800 MG, QD
     Route: 048
     Dates: start: 20170626, end: 20170628
  24. CLEMASTINE [Concomitant]
     Active Substance: CLEMASTINE
     Indication: Prophylaxis
     Dosage: 2 MG, QD
     Route: 048
     Dates: start: 20170626, end: 20170628
  25. NEXIUM [Concomitant]
     Active Substance: ESOMEPRAZOLE MAGNESIUM
     Indication: Prophylaxis
     Dosage: 40 MG, QD
     Route: 048
     Dates: start: 20170626, end: 20170628
  26. TOLPERISONE [Concomitant]
     Active Substance: TOLPERISONE
     Indication: Multiple sclerosis
     Dosage: 150 MG, QD
     Route: 048
     Dates: start: 20180316, end: 20180323
  27. TOLPERISONE [Concomitant]
     Active Substance: TOLPERISONE
     Dosage: 300 MG, QD
     Route: 048
     Dates: start: 20180323, end: 20180412
  28. TOLPERISONE [Concomitant]
     Active Substance: TOLPERISONE
     Dosage: 450 MG, QD
     Route: 048
     Dates: start: 20180412
  29. BOTOX [Concomitant]
     Active Substance: ONABOTULINUMTOXINA
     Indication: Prophylaxis
     Dosage: 1 IU, QD (ROUTE: BLADDER)
     Route: 050
     Dates: start: 20190703, end: 20190703
  30. BOTOX [Concomitant]
     Active Substance: ONABOTULINUMTOXINA
     Dosage: 500 IE, QD (ROUTE: INTRAMUSCULAR BLADDER INJECTION)
     Route: 030
     Dates: start: 20190703, end: 20190703
  31. BOTOX [Concomitant]
     Active Substance: ONABOTULINUMTOXINA
     Dosage: 1 IU, QD (ROUTE: BLADDER)
     Route: 050
     Dates: start: 20180711, end: 20180711
  32. BOTOX [Concomitant]
     Active Substance: ONABOTULINUMTOXINA
     Dosage: 500 IE, QD (ROUTE: BOTOX INJECTION BLADDER)
     Route: 030
     Dates: start: 20180711, end: 20180711
  33. BOTOX [Concomitant]
     Active Substance: ONABOTULINUMTOXINA
     Dosage: 500 IU, QD (BOTOX TREATMENT RIGHT LEG)
     Route: 030
     Dates: start: 20180717, end: 20180717
  34. LEVOMEPROMAZINE [Concomitant]
     Active Substance: LEVOMEPROMAZINE
     Indication: Prophylaxis
     Dosage: 25 MG, QD
     Route: 048
     Dates: start: 20190627
  35. XYLOMETAZOLINE [Concomitant]
     Active Substance: XYLOMETAZOLINE
     Indication: Prophylaxis
     Dosage: 1 MG, QD
     Route: 045
     Dates: start: 20190627

REACTIONS (10)
  - Urosepsis [Recovered/Resolved]
  - Ophthalmic herpes simplex [Recovered/Resolved]
  - Urinary tract infection [Recovered/Resolved]
  - Ophthalmic herpes simplex [Recovered/Resolved with Sequelae]
  - Gait disturbance [Recovered/Resolved]
  - Blood glucose increased [Recovered/Resolved]
  - Thrombosis [Recovering/Resolving]
  - Ulcer [Recovered/Resolved]
  - Ill-defined disorder [Recovering/Resolving]
  - Cystitis [Recovering/Resolving]

NARRATIVE: CASE EVENT DATE: 20171016
